FAERS Safety Report 11492889 (Version 1)
Quarter: 2015Q3

REPORT INFORMATION
  Report Type: Spontaneous
  Country: DE (occurrence: DE)
  Receive Date: 20150911
  Receipt Date: 20150911
  Transmission Date: 20151125
  Serious: Yes (Other)
  Sender: FDA-Public Use
  Company Number: DE-AMGEN-DEUSP2015050187

PATIENT
  Age: 63 Year
  Sex: Female
  Weight: 28.8 kg

DRUGS (5)
  1. VITAMIN D                          /00107901/ [Concomitant]
     Active Substance: ERGOCALCIFEROL
     Dosage: 2000 IU, QD
     Dates: start: 2012
  2. CIPRALEX [Concomitant]
     Active Substance: ESCITALOPRAM OXALATE
     Indication: DEPRESSED MOOD
     Dosage: UNK
  3. CALCIUM [Concomitant]
     Active Substance: CALCIUM
     Dosage: 600 MG, QD
  4. VALDOXAN [Concomitant]
     Active Substance: AGOMELATINE
     Indication: DEPRESSED MOOD
     Dosage: UNK
  5. PROLIA [Suspect]
     Active Substance: DENOSUMAB
     Indication: OSTEOPOROSIS POSTMENOPAUSAL
     Dosage: 1 DF, Q6MO
     Route: 065
     Dates: start: 20120430, end: 20150717

REACTIONS (5)
  - Arthralgia [Unknown]
  - Thoracic vertebral fracture [Recovering/Resolving]
  - Lumbar vertebral fracture [Recovering/Resolving]
  - Abdominal pain lower [Unknown]
  - Petechiae [Unknown]

NARRATIVE: CASE EVENT DATE: 20150716
